FAERS Safety Report 15250256 (Version 1)
Quarter: 2018Q3

REPORT INFORMATION
  Report Type: Spontaneous
  Country: US (occurrence: US)
  Receive Date: 20180716
  Receipt Date: 20180716
  Transmission Date: 20181010
  Serious: No
  Sender: FDA-Public Use
  Company Number: None

PATIENT
  Age: 82 Year
  Sex: Female
  Weight: 37.35 kg

DRUGS (11)
  1. ANASTROZOLE. [Concomitant]
     Active Substance: ANASTROZOLE
  2. ASPIRIN. [Concomitant]
     Active Substance: ASPIRIN
  3. XELODA [Concomitant]
     Active Substance: CAPECITABINE
  4. CAPECITABINE. [Suspect]
     Active Substance: CAPECITABINE
     Indication: BREAST CANCER
     Route: 048
     Dates: start: 20161115
  5. LIPITOR [Concomitant]
     Active Substance: ATORVASTATIN CALCIUM
  6. ARIMIDEX [Concomitant]
     Active Substance: ANASTROZOLE
  7. TOPROL XL [Concomitant]
     Active Substance: METOPROLOL SUCCINATE
  8. EXEMESTANE. [Concomitant]
     Active Substance: EXEMESTANE
  9. LOSARTAN. [Concomitant]
     Active Substance: LOSARTAN
  10. VITAMIN D3 [Concomitant]
     Active Substance: CHOLECALCIFEROL
  11. FERROUS SULFATE. [Concomitant]
     Active Substance: FERROUS SULFATE

REACTIONS (1)
  - Oral mucosal blistering [None]

NARRATIVE: CASE EVENT DATE: 20180709
